FAERS Safety Report 18695271 (Version 1)
Quarter: 2021Q1

REPORT INFORMATION
  Report Type: Spontaneous
  Country: US (occurrence: US)
  Receive Date: 20210102
  Receipt Date: 20210102
  Transmission Date: 20210419
  Serious: Yes (Other)
  Sender: FDA-Public Use
  Company Number: None

PATIENT
  Age: 49 Year
  Sex: Male

DRUGS (3)
  1. IMIPRAMINE  HCL [Suspect]
     Active Substance: IMIPRAMINE HYDROCHLORIDE
     Indication: PANIC ATTACK
  2. IMIPRAMINE  HCL [Suspect]
     Active Substance: IMIPRAMINE HYDROCHLORIDE
     Indication: OBSESSIVE-COMPULSIVE DISORDER
  3. IMIPRAMINE  HCL [Suspect]
     Active Substance: IMIPRAMINE HYDROCHLORIDE
     Indication: ANXIETY

REACTIONS (2)
  - Product substitution issue [None]
  - Drug ineffective [None]

NARRATIVE: CASE EVENT DATE: 20201230
